FAERS Safety Report 13758194 (Version 2)
Quarter: 2017Q3

REPORT INFORMATION
  Report Type: Report from Study
  Country: CA (occurrence: CA)
  Receive Date: 20170717
  Receipt Date: 20170721
  Transmission Date: 20171127
  Serious: Yes (Other)
  Sender: FDA-Public Use
  Company Number: CA-GLAXOSMITHKLINE-CA2017GSK107418

PATIENT
  Age: 67 Year
  Sex: Male
  Weight: 118 kg

DRUGS (7)
  1. VITAMIN D3 [Concomitant]
     Active Substance: CHOLECALCIFEROL
     Indication: PRODUCT USED FOR UNKNOWN INDICATION
     Dosage: UNK
  2. SPIRIVA [Suspect]
     Active Substance: TIOTROPIUM BROMIDE MONOHYDRATE
     Indication: PRODUCT USED FOR UNKNOWN INDICATION
     Dosage: 2 DF, QD
  3. FISH OIL [Concomitant]
     Active Substance: FISH OIL
     Indication: PRODUCT USED FOR UNKNOWN INDICATION
     Dosage: UNK
  4. SALBUTAMOL SULPHATE [Suspect]
     Active Substance: ALBUTEROL SULFATE
     Indication: PRODUCT USED FOR UNKNOWN INDICATION
     Dosage: UNK UNK, BID
  5. B12 INJECTION [Concomitant]
     Indication: PRODUCT USED FOR UNKNOWN INDICATION
     Dosage: 200 DF, QD
  6. BREO ELLIPTA [Suspect]
     Active Substance: FLUTICASONE FUROATE\VILANTEROL TRIFENATATE
     Indication: PRODUCT USED FOR UNKNOWN INDICATION
     Dosage: 200 DF, QD
  7. LOSEC [Concomitant]
     Active Substance: OMEPRAZOLE
     Indication: PRODUCT USED FOR UNKNOWN INDICATION
     Dosage: UNK

REACTIONS (21)
  - Bronchial hyperreactivity [Unknown]
  - Infection [Unknown]
  - Antinuclear antibody positive [Unknown]
  - Wheezing [Unknown]
  - Pulmonary mass [Unknown]
  - Pectus excavatum [Unknown]
  - Eosinophilia [Unknown]
  - Chest pain [Unknown]
  - Rhinitis [Unknown]
  - Blood immunoglobulin E abnormal [Unknown]
  - Productive cough [Unknown]
  - Dyspnoea exertional [Unknown]
  - Dyspnoea [Unknown]
  - Restrictive pulmonary disease [Unknown]
  - Asthma [Unknown]
  - Chest discomfort [Unknown]
  - Pneumonia [Unknown]
  - Pleural disorder [Unknown]
  - Oxygen saturation decreased [Unknown]
  - Deformity thorax [Unknown]
  - Prolonged expiration [Unknown]

NARRATIVE: CASE EVENT DATE: 201601
